FAERS Safety Report 24253238 (Version 1)
Quarter: 2024Q3

REPORT INFORMATION
  Report Type: Spontaneous
  Country: US (occurrence: US)
  Receive Date: 20240827
  Receipt Date: 20240827
  Transmission Date: 20241016
  Serious: Yes (Hospitalization)
  Sender: MYLAN
  Company Number: US-MYLANLABS-2024M1078139

PATIENT
  Age: 87 Year
  Sex: Male

DRUGS (8)
  1. AMIODARONE [Suspect]
     Active Substance: AMIODARONE
     Indication: Atrial fibrillation
     Dosage: UNK (BOLUS)
     Route: 065
  2. AMIODARONE [Suspect]
     Active Substance: AMIODARONE
     Dosage: UNK (INFUSION)
     Route: 065
  3. FLECAINIDE [Suspect]
     Active Substance: FLECAINIDE
     Indication: Atrial fibrillation
     Dosage: 100 MILLIGRAM, BID
     Route: 065
  4. FLECAINIDE [Suspect]
     Active Substance: FLECAINIDE
     Dosage: 100 MILLIGRAM (EXTRA DOSE),  LATER RESTARTED
     Route: 065
  5. APIXABAN [Concomitant]
     Active Substance: APIXABAN
     Indication: Cerebrovascular accident
     Dosage: UNK
     Route: 065
  6. APIXABAN [Concomitant]
     Active Substance: APIXABAN
     Indication: Prophylaxis
  7. METOPROLOL [Concomitant]
     Active Substance: METOPROLOL
     Indication: Atrial fibrillation
     Dosage: UNK
     Route: 065
  8. METOPROLOL [Concomitant]
     Active Substance: METOPROLOL
     Dosage: UNK (LATER RESTARTED)
     Route: 065

REACTIONS (2)
  - Electrocardiogram QRS complex prolonged [Recovered/Resolved]
  - Tachycardia [Recovered/Resolved]
